FAERS Safety Report 9956039 (Version 2)
Quarter: 2014Q1

REPORT INFORMATION
  Report Type: Report from Study
  Country: US (occurrence: US)
  Receive Date: 20140304
  Receipt Date: 20140304
  Transmission Date: 20141002
  Serious: No
  Sender: FDA-Public Use
  Company Number: US-ABBVIE-10P-163-0659175-00

PATIENT
  Age: 51 Year
  Sex: Female

DRUGS (8)
  1. HUMIRA [Suspect]
     Indication: CROHN^S DISEASE
     Dates: start: 20100702
  2. HUMIRA [Suspect]
     Indication: COLITIS ULCERATIVE
  3. NORTRIPTYLINE [Concomitant]
     Indication: PRURITUS
  4. HYDROCHLOROTHIAZIDE [Concomitant]
     Indication: ABDOMINAL DISTENSION
  5. EVINET [Concomitant]
     Indication: CONTRACEPTION
  6. CALTRATE [Concomitant]
     Indication: PRODUCT USED FOR UNKNOWN INDICATION
  7. DAILY VITAMINS [Concomitant]
     Indication: PRODUCT USED FOR UNKNOWN INDICATION
  8. POTASSIUM [Concomitant]
     Indication: SUPPLEMENTATION THERAPY

REACTIONS (7)
  - Injection site bruising [Recovering/Resolving]
  - Injection site pain [Not Recovered/Not Resolved]
  - Injection site pain [Not Recovered/Not Resolved]
  - Injection site bruising [Not Recovered/Not Resolved]
  - Injection site haemorrhage [Not Recovered/Not Resolved]
  - Blood blister [Not Recovered/Not Resolved]
  - Injection site haemorrhage [Not Recovered/Not Resolved]
